FAERS Safety Report 7117904-1 (Version None)
Quarter: 2010Q4

REPORT INFORMATION
  Report Type: 
  Country: None (occurrence: None)
  Receive Date: 20101118
  Receipt Date: 20101118
  Transmission Date: 20110411
  Serious: Yes (Other)
  Sender: FDA-Public Use
  Company Number: None

PATIENT
  Age: 82 Year
  Sex: Male
  Weight: 69.8539 kg

DRUGS (3)
  1. FLOMAX [Suspect]
     Indication: BENIGN PROSTATIC HYPERPLASIA
     Dosage: 0.4 BEDTIME PO
     Route: 048
     Dates: start: 20101109, end: 20101115
  2. FLOMAX [Suspect]
     Indication: PAIN
     Dosage: 0.4 BEDTIME PO
     Route: 048
     Dates: start: 20101109, end: 20101115
  3. FLOMAX [Suspect]
     Indication: URINE FLOW DECREASED
     Dosage: 0.4 BEDTIME PO
     Route: 048
     Dates: start: 20101109, end: 20101115

REACTIONS (6)
  - ASTHENIA [None]
  - DEPRESSION [None]
  - DIZZINESS [None]
  - GAIT DISTURBANCE [None]
  - SUICIDAL IDEATION [None]
  - SYNCOPE [None]
